FAERS Safety Report 8395459-1 (Version None)
Quarter: 2012Q2

REPORT INFORMATION
  Report Type: 
  Country: None (occurrence: None)
  Receive Date: 20120530
  Receipt Date: 20120521
  Transmission Date: 20120825
  Serious: Yes (Hospitalization)
  Sender: FDA-Public Use
  Company Number: US-ASTRAZENECA-2009SE05900

PATIENT
  Age: 55 Year
  Sex: Male
  Weight: 72.1 kg

DRUGS (6)
  1. LITHIUM [Concomitant]
  2. SEROQUEL [Suspect]
     Indication: BIPOLAR DISORDER
     Route: 048
  3. SEROQUEL [Suspect]
     Route: 048
  4. SEROQUEL [Suspect]
     Route: 048
     Dates: start: 20100101
  5. LAMICTAL [Concomitant]
  6. SEROQUEL [Suspect]
     Route: 048
     Dates: start: 20110101

REACTIONS (10)
  - WEIGHT DECREASED [None]
  - ABDOMINAL PAIN UPPER [None]
  - APHAGIA [None]
  - IRRITABLE BOWEL SYNDROME [None]
  - SERUM SEROTONIN DECREASED [None]
  - ABDOMINAL DISCOMFORT [None]
  - ABDOMINAL PAIN [None]
  - INSOMNIA [None]
  - DYSPEPSIA [None]
  - INTENTIONAL DRUG MISUSE [None]
